FAERS Safety Report 9128391 (Version 2)
Quarter: 2013Q2

REPORT INFORMATION
  Report Type: Report from Study
  Country: US (occurrence: US)
  Receive Date: 20130228
  Receipt Date: 20130625
  Transmission Date: 20140414
  Serious: Yes (Hospitalization)
  Sender: FDA-Public Use
  Company Number: US-JNJFOC-20130215533

PATIENT
  Age: 71 Year
  Sex: Female
  Weight: 70.4 kg

DRUGS (1)
  1. APAP/DIPHENHYDRAMINE [Suspect]
     Indication: PRODUCT USED FOR UNKNOWN INDICATION
     Route: 048

REACTIONS (5)
  - Syncope [Recovered/Resolved]
  - Somnolence [Recovered/Resolved]
  - Prothrombin time prolonged [Recovered/Resolved]
  - Overdose [Recovered/Resolved]
  - Depressed level of consciousness [None]
